FAERS Safety Report 4786234-5 (Version None)
Quarter: 2005Q3

REPORT INFORMATION
  Report Type: 
  Country: None (occurrence: None)
  Receive Date: 20050930
  Receipt Date: 20050913
  Transmission Date: 20060218
  Serious: Yes (Death)
  Sender: FDA-Public Use
  Company Number: DSA_27158_2005

PATIENT
  Age: 15 Year

DRUGS (3)
  1. ENALAPRIL [Suspect]
     Dosage: DF, PO
     Route: 048
  2. METFORMIN [Suspect]
     Dosage: DF, PO
     Route: 048
  3. DIPHENHYDRAMINE [Suspect]
     Dosage: DF , PO
     Route: 048

REACTIONS (3)
  - COMPLETED SUICIDE [None]
  - INTENTIONAL MISUSE [None]
  - OVERDOSE [None]
